FAERS Safety Report 4638121-0 (Version None)
Quarter: 2005Q2

REPORT INFORMATION
  Report Type: 
  Country: None (occurrence: None)
  Receive Date: 20050415
  Receipt Date: 20050405
  Transmission Date: 20051028
  Serious: Yes (Other)
  Sender: FDA-Public Use
  Company Number: 2005042689

PATIENT
  Age: 36 Year
  Sex: Female
  Weight: 65.7716 kg

DRUGS (3)
  1. NEURONTIN [Suspect]
     Indication: EPILEPSY
     Dosage: 100 MG (100 MG, 1 IN 1 D), ORAL
     Route: 048
     Dates: start: 19990318
  2. NEURONTIN [Suspect]
     Indication: PETIT MAL EPILEPSY
     Dosage: 100 MG (100 MG, 1 IN 1 D), ORAL
     Route: 048
     Dates: start: 19990318
  3. CARBAMAZEPINE [Concomitant]

REACTIONS (4)
  - HEADACHE [None]
  - PETIT MAL EPILEPSY [None]
  - POOR QUALITY DRUG ADMINISTERED [None]
  - STRESS [None]
